FAERS Safety Report 8581455-8 (Version None)
Quarter: 2012Q3

REPORT INFORMATION
  Report Type: 
  Country: None (occurrence: None)
  Receive Date: 20120809
  Receipt Date: 20120727
  Transmission Date: 20120928
  Serious: Yes (Other)
  Sender: FDA-Public Use
  Company Number: GB-VALEANT-2012VX002727

PATIENT
  Age: 64 Year
  Sex: Male

DRUGS (3)
  1. EFUDEX [Suspect]
     Route: 061
  2. MORPHINE [Concomitant]
     Route: 065
  3. LAXATIVES [Concomitant]
     Route: 065

REACTIONS (4)
  - BLOOD URINE PRESENT [None]
  - ABDOMINAL PAIN UPPER [None]
  - DIFFUSE LARGE B-CELL LYMPHOMA [None]
  - VOMITING [None]
